FAERS Safety Report 12980166 (Version 8)
Quarter: 2017Q1

REPORT INFORMATION
  Report Type: Report from Study
  Country: RO (occurrence: RO)
  Receive Date: 20161128
  Receipt Date: 20170321
  Transmission Date: 20170428
  Serious: Yes (Death, Hospitalization)
  Sender: FDA-Public Use
  Company Number: RO-PFIZER INC-2016546896

PATIENT
  Age: 61 Year
  Sex: Male
  Weight: 70 kg

DRUGS (5)
  1. DOCETAXEL. [Suspect]
     Active Substance: DOCETAXEL
     Dosage: UNK
  2. DOCETAXEL. [Suspect]
     Active Substance: DOCETAXEL
     Dosage: UNK
  3. DOCETAXEL. [Suspect]
     Active Substance: DOCETAXEL
     Indication: NON-SMALL CELL LUNG CANCER
     Dosage: 75 MG/M2, CYCLIC (EVERY 3 WEEKS)
     Route: 042
     Dates: start: 20160809, end: 20161102
  4. DOCETAXEL. [Suspect]
     Active Substance: DOCETAXEL
     Dosage: UNK
  5. DOCETAXEL. [Suspect]
     Active Substance: DOCETAXEL
     Dosage: UNK

REACTIONS (2)
  - Renal impairment [Fatal]
  - Cardiac failure congestive [Fatal]

NARRATIVE: CASE EVENT DATE: 20161114
